FAERS Safety Report 5507956-4 (Version None)
Quarter: 2007Q4

REPORT INFORMATION
  Report Type: 
  Country: None (occurrence: None)
  Receive Date: 20071106
  Receipt Date: 20071025
  Transmission Date: 20080405
  Serious: Yes (Other)
  Sender: FDA-Public Use
  Company Number: GB-AMGEN-US239372

PATIENT
  Sex: Female

DRUGS (2)
  1. ENBREL [Suspect]
     Indication: ANKYLOSING SPONDYLITIS
     Dosage: 25MG, FREQUENCY NOT STATED
     Route: 058
     Dates: start: 20061201
  2. DEPO-PROVERA [Concomitant]
     Dosage: UNKNOWN

REACTIONS (1)
  - GOITRE [None]
